FAERS Safety Report 6536803-7 (Version None)
Quarter: 2010Q1

REPORT INFORMATION
  Report Type: 
  Country: None (occurrence: None)
  Receive Date: 20100113
  Receipt Date: 20100106
  Transmission Date: 20100710
  Serious: Yes (Hospitalization)
  Sender: FDA-Public Use
  Company Number: US-AMGEN-QUU384077

PATIENT
  Sex: Male

DRUGS (2)
  1. ENBREL [Suspect]
     Indication: PSORIATIC ARTHROPATHY
     Route: 058
     Dates: start: 20070101
  2. ENBREL [Suspect]
     Indication: PSORIASIS

REACTIONS (4)
  - ANGIOPLASTY [None]
  - PSORIASIS [None]
  - STENT PLACEMENT [None]
  - STENT REMOVAL [None]
